FAERS Safety Report 7824233-7 (Version None)
Quarter: 2011Q4

REPORT INFORMATION
  Report Type: 
  Country: None (occurrence: None)
  Receive Date: 20111018
  Receipt Date: 20111018
  Transmission Date: 20120403
  Serious: No
  Sender: FDA-Public Use
  Company Number: None

PATIENT
  Age: 69 Year
  Sex: Male
  Weight: 89.5 kg

DRUGS (1)
  1. IOPAMIDOL [Suspect]
     Dosage: 300 MG ONCE IV
     Route: 042
     Dates: start: 20110908, end: 20110908

REACTIONS (2)
  - NAUSEA [None]
  - VOMITING [None]
